FAERS Safety Report 4534668-6 (Version None)
Quarter: 2004Q4

REPORT INFORMATION
  Report Type: 
  Country: None (occurrence: None)
  Receive Date: 20041214
  Receipt Date: 20041008
  Transmission Date: 20050328
  Serious: No
  Sender: FDA-Public Use
  Company Number: 2004238497US

PATIENT
  Age: 74 Year
  Sex: Female
  Weight: 79.8 kg

DRUGS (7)
  1. BEXTRA [Suspect]
     Indication: ARTHRITIS
     Dosage: 20 MG, QD, ORAL
     Route: 048
     Dates: start: 20041007
  2. EXTRA STRENGTH TYLENOL [Concomitant]
  3. OPHTHALMOLOGICALS [Concomitant]
  4. TOPROL-XL [Concomitant]
  5. VIOXX [Concomitant]
  6. MAXZIDE [Concomitant]
  7. LO-TROL [Concomitant]

REACTIONS (2)
  - MEDICATION ERROR [None]
  - UNEVALUABLE EVENT [None]
